FAERS Safety Report 22192119 (Version 8)
Quarter: 2024Q1

REPORT INFORMATION
  Report Type: Spontaneous
  Country: US (occurrence: US)
  Receive Date: 20230410
  Receipt Date: 20240105
  Transmission Date: 20240410
  Serious: Yes (Other)
  Sender: FDA-Public Use
  Company Number: US-PFIZER INC-PV202300064469

PATIENT
  Age: 85 Year
  Sex: Female

DRUGS (5)
  1. IBRANCE [Suspect]
     Active Substance: PALBOCICLIB
     Indication: Breast cancer female
     Dosage: 125 MG, DAILY
     Route: 048
  2. IBRANCE [Suspect]
     Active Substance: PALBOCICLIB
     Indication: Metastases to chest wall
     Dosage: MUST HAVE TAKEN IT 2 WEEKS AND THEN DIDN^T TAKE IT FOR A WEEK
  3. IBRANCE [Suspect]
     Active Substance: PALBOCICLIB
     Dosage: TAKE 1 TABLET PO (PER ORAL) DAILY DAYS 1-21, EVERY 28 DAY CYCLE
     Route: 048
  4. IBRANCE [Suspect]
     Active Substance: PALBOCICLIB
     Dosage: 125 MG (1 CAPSULE TAKE AS DIRECTED)
  5. IBRANCE [Suspect]
     Active Substance: PALBOCICLIB
     Dosage: 125 MG, DAILY (1 TABLET EVERY DAY )

REACTIONS (7)
  - Dementia [Not Recovered/Not Resolved]
  - Neoplasm progression [Unknown]
  - Memory impairment [Unknown]
  - Agitation [Unknown]
  - Product prescribing error [Unknown]
  - Off label use [Unknown]
  - Product dose omission issue [Unknown]

NARRATIVE: CASE EVENT DATE: 20220101
